FAERS Safety Report 25299359 (Version 1)
Quarter: 2025Q2

REPORT INFORMATION
  Report Type: Spontaneous
  Country: US (occurrence: US)
  Receive Date: 20250512
  Receipt Date: 20250512
  Transmission Date: 20250717
  Serious: No
  Sender: ROCHE
  Company Number: US-ROCHE-10000281368

PATIENT
  Sex: Male

DRUGS (2)
  1. ALECENSA [Suspect]
     Active Substance: ALECTINIB HYDROCHLORIDE
     Indication: Lung neoplasm malignant
     Route: 048
     Dates: start: 202202
  2. LORBRENA [Concomitant]
     Active Substance: LORLATINIB

REACTIONS (3)
  - Oedema [Unknown]
  - Tremor [Unknown]
  - Heart rate increased [Unknown]
